FAERS Safety Report 7404106-4 (Version None)
Quarter: 2011Q2

REPORT INFORMATION
  Report Type: 
  Country: None (occurrence: None)
  Receive Date: 20110408
  Receipt Date: 20110329
  Transmission Date: 20111010
  Serious: Yes (Other)
  Sender: FDA-Public Use
  Company Number: US-PURDUE-USA-2010-0047349

PATIENT
  Age: 44 Year
  Sex: Male
  Weight: 126.98 kg

DRUGS (6)
  1. SOMA [Concomitant]
     Indication: PRODUCT USED FOR UNKNOWN INDICATION
     Dosage: UNK, PRN
  2. OXYCONTIN [Suspect]
     Indication: PAIN
     Dosage: 80 MG, Q8H
  3. XANAX [Concomitant]
     Indication: PRODUCT USED FOR UNKNOWN INDICATION
     Dosage: 2 MG, QID
  4. ROXICODONE [Concomitant]
     Indication: PRODUCT USED FOR UNKNOWN INDICATION
  5. OXYCONTIN [Suspect]
     Dosage: 60 MG, Q8H
  6. NEURONTIN [Concomitant]
     Indication: PRODUCT USED FOR UNKNOWN INDICATION
     Dosage: 300 MG, TID

REACTIONS (8)
  - CONSTIPATION [None]
  - NAUSEA [None]
  - WEIGHT INCREASED [None]
  - HYPOVENTILATION [None]
  - DRUG EFFECT DELAYED [None]
  - ACNE [None]
  - INADEQUATE ANALGESIA [None]
  - DRUG EFFECT DECREASED [None]
